FAERS Safety Report 9870968 (Version 3)
Quarter: 2014Q2

REPORT INFORMATION
  Report Type: Spontaneous
  Country: IT (occurrence: IT)
  Receive Date: 20140205
  Receipt Date: 20140501
  Transmission Date: 20141212
  Serious: Yes (Hospitalization)
  Sender: FDA-Public Use
  Company Number: IT-MYLANLABS-2014S1001858

PATIENT
  Age: 42 Year
  Sex: Male
  Weight: 0 kg

DRUGS (3)
  1. NOVOMIX [Suspect]
     Indication: PRODUCT USED FOR UNKNOWN INDICATION
     Dosage: 140 LU TOTAL
     Route: 058
     Dates: start: 20131004, end: 20131004
  2. METFORMIN HYDROCHLORIDE [Suspect]
     Indication: PRODUCT USED FOR UNKNOWN INDICATION
     Dosage: 8.5 MG TOTAL
     Route: 048
     Dates: start: 20131004, end: 20131004
  3. LANTUS [Concomitant]
     Indication: PRODUCT USED FOR UNKNOWN INDICATION
     Dosage: 20 LU
     Route: 058

REACTIONS (4)
  - Overdose [Recovered/Resolved]
  - Hypoglycaemic coma [Recovered/Resolved]
  - Suicide attempt [Unknown]
  - Drug abuse [Unknown]
